FAERS Safety Report 25860746 (Version 3)
Quarter: 2025Q4

REPORT INFORMATION
  Report Type: Spontaneous
  Country: US (occurrence: US)
  Receive Date: 20250929
  Receipt Date: 20251026
  Transmission Date: 20260118
  Serious: No
  Sender: SANOFI AVENTIS
  Company Number: US-SANOFI-02665832

PATIENT
  Age: 78 Year
  Sex: Female
  Weight: 68.18 kg

DRUGS (10)
  1. DUPIXENT [Suspect]
     Active Substance: DUPILUMAB
     Indication: Dermatitis atopic
     Dosage: 300 MG, QOW
     Route: 058
  2. RESTASIS [Concomitant]
     Active Substance: CYCLOSPORINE
  3. MURO 128 [Concomitant]
     Active Substance: SODIUM CHLORIDE
  4. SIMVASTATIN [Concomitant]
     Active Substance: SIMVASTATIN
  5. IRBESARTAN [Concomitant]
     Active Substance: IRBESARTAN
  6. PROTONIX [Concomitant]
     Active Substance: PANTOPRAZOLE SODIUM
  7. VITAMIN B12 [Concomitant]
     Active Substance: CYANOCOBALAMIN
  8. CLOBETASOL [Concomitant]
     Active Substance: CLOBETASOL
  9. HYDROCHLOROTHIAZIDE [Concomitant]
     Active Substance: HYDROCHLOROTHIAZIDE
  10. PANTOPRAZOLE SODIUM [Concomitant]
     Active Substance: PANTOPRAZOLE SODIUM

REACTIONS (4)
  - Urticaria [Not Recovered/Not Resolved]
  - Injection site pain [Unknown]
  - Accidental exposure to product [Unknown]
  - Exposure via skin contact [Unknown]

NARRATIVE: CASE EVENT DATE: 20250922
